FAERS Safety Report 9564795 (Version 1)
Quarter: 2013Q3

REPORT INFORMATION
  Report Type: Spontaneous
  Country: TR (occurrence: TR)
  Receive Date: 20130930
  Receipt Date: 20130930
  Transmission Date: 20140515
  Serious: Yes (Other)
  Sender: FDA-Public Use
  Company Number: PHHY2013TR107875

PATIENT
  Age: 75 Year
  Sex: Male

DRUGS (4)
  1. ZOMETA [Suspect]
     Indication: PLASMA CELL MYELOMA
     Dosage: 4 MG, MONTHLY
     Route: 042
  2. AREDIA [Suspect]
     Indication: PLASMA CELL MYELOMA
     Dosage: 90 MG, MONTHLY
     Route: 042
  3. GLUCOPHAGE [Suspect]
     Dosage: 500 MG, BID
  4. FLOMAX [Suspect]
     Dosage: 0.4 MG, QD

REACTIONS (2)
  - Osteonecrosis of jaw [Unknown]
  - Exposed bone in jaw [Unknown]
